FAERS Safety Report 4293220-0 (Version None)
Quarter: 2004Q1

REPORT INFORMATION
  Report Type: 
  Country: None (occurrence: None)
  Receive Date: 20040126
  Receipt Date: 20031014
  Transmission Date: 20041129
  Serious: No
  Sender: FDA-Public Use
  Company Number: USA031049873

PATIENT
  Age: 83 Year
  Sex: Female

DRUGS (1)
  1. FORTEO [Suspect]
     Dates: start: 20030801

REACTIONS (6)
  - BRONCHIAL INFECTION [None]
  - COUGH [None]
  - DIARRHOEA [None]
  - HEADACHE [None]
  - NAUSEA [None]
  - SINUS CONGESTION [None]
